FAERS Safety Report 9240281 (Version 2)
Quarter: 2013Q2

REPORT INFORMATION
  Report Type: Spontaneous
  Country: US (occurrence: None)
  Receive Date: 20130417
  Receipt Date: 20130510
  Transmission Date: 20140414
  Serious: Yes (Hospitalization)
  Sender: FDA-Public Use
  Company Number: JPI-P-031031

PATIENT
  Age: 8 Year
  Sex: Female
  Weight: 19.96 kg

DRUGS (2)
  1. XYREM [Suspect]
     Indication: NARCOLEPSY
     Dosage: 9 GM (4.5 GM, 2 IN 1 D), ORAL
     Route: 048
     Dates: start: 20130131, end: 2013
  2. UNSPECIFIED MEDICATIONS [Concomitant]

REACTIONS (1)
  - Influenza [None]
